FAERS Safety Report 11152168 (Version 3)
Quarter: 2015Q2

REPORT INFORMATION
  Report Type: Spontaneous
  Country: US (occurrence: US)
  Receive Date: 20150601
  Receipt Date: 20150611
  Transmission Date: 20150821
  Serious: Yes (Death, Hospitalization)
  Sender: FDA-Public Use
  Company Number: US-BAXTER-2015BAX027704

PATIENT
  Sex: Male

DRUGS (2)
  1. DIANEAL LOW CALCIUM PERITONEAL DIALYSIS SOLUTION WITH DEXTROSE [Suspect]
     Active Substance: CALCIUM CHLORIDE\DEXTROSE\MAGNESIUM CHLORIDE\SODIUM CHLORIDE\SODIUM LACTATE
     Indication: PERITONEAL DIALYSIS
  2. DIANEAL LOW CALCIUM PERITONEAL DIALYSIS SOLUTION WITH DEXTROSE [Suspect]
     Active Substance: CALCIUM CHLORIDE\DEXTROSE\MAGNESIUM CHLORIDE\SODIUM CHLORIDE\SODIUM LACTATE
     Indication: CHRONIC KIDNEY DISEASE
     Route: 033
     Dates: start: 20120426, end: 20150530

REACTIONS (8)
  - Diabetic complication [Recovering/Resolving]
  - Diabetic vascular disorder [Recovering/Resolving]
  - Diet refusal [Unknown]
  - Vascular calcification [Recovering/Resolving]
  - Renal failure [Fatal]
  - Skin discolouration [Recovering/Resolving]
  - Diabetes mellitus [Fatal]
  - Diabetic ulcer [Recovering/Resolving]

NARRATIVE: CASE EVENT DATE: 201501
